FAERS Safety Report 21700746 (Version 1)
Quarter: 2022Q4

REPORT INFORMATION
  Report Type: Spontaneous
  Country: US (occurrence: None)
  Receive Date: 20221207
  Receipt Date: 20221207
  Transmission Date: 20230112
  Serious: Yes (Hospitalization)
  Sender: FDA-Public Use
  Company Number: None

PATIENT
  Age: 80 Year
  Sex: Male
  Weight: 109.77 kg

DRUGS (2)
  1. APIXABAN [Suspect]
     Active Substance: APIXABAN
     Indication: Atrial fibrillation
     Dosage: 2.5 MB BID PO?
     Route: 048
     Dates: start: 20220912, end: 20220913
  2. ENOXAPARIN [Suspect]
     Active Substance: ENOXAPARIN
     Dosage: 100 MG BID SQ
     Route: 058
     Dates: start: 20220908, end: 20220912

REACTIONS (3)
  - Haematoma muscle [None]
  - Hypotension [None]
  - Mental status changes [None]

NARRATIVE: CASE EVENT DATE: 20220913
